FAERS Safety Report 8224380-4 (Version None)
Quarter: 2012Q1

REPORT INFORMATION
  Report Type: 
  Country: None (occurrence: None)
  Receive Date: 20120319
  Receipt Date: 20120116
  Transmission Date: 20120608
  Serious: Yes (Death)
  Sender: FDA-Public Use
  Company Number: AE12-014-3

PATIENT
  Age: 54 Year
  Sex: Female

DRUGS (3)
  1. TRICYCLIC/ANTIDEPRESSANT [Suspect]
  2. BUTALBITAL ACETAMINOPHEN AND CAFFEINE [Suspect]
  3. OPIOID [Suspect]

REACTIONS (1)
  - DEATH [None]
